FAERS Safety Report 5379525-0 (Version None)
Quarter: 2007Q3

REPORT INFORMATION
  Report Type: 
  Country: None (occurrence: None)
  Receive Date: 20070703
  Receipt Date: 20070619
  Transmission Date: 20080115
  Serious: Yes (Hospitalization)
  Sender: FDA-Public Use
  Company Number: 20073868

PATIENT
  Sex: Female

DRUGS (2)
  1. LIORESAL [Suspect]
     Indication: MUSCLE SPASTICITY
     Dosage: DAILY, INTRATHECAL
     Route: 037
  2. ORAL BACLOFEN [Concomitant]

REACTIONS (9)
  - COLD SWEAT [None]
  - DRUG DOSE OMISSION [None]
  - DRUG WITHDRAWAL SYNDROME [None]
  - DYSKINESIA [None]
  - GLOSSOPHARYNGEAL NERVE PARALYSIS [None]
  - ORAL INTAKE REDUCED [None]
  - RESPIRATORY RATE INCREASED [None]
  - TONGUE PARALYSIS [None]
  - TREMOR [None]
